FAERS Safety Report 6833210-4 (Version None)
Quarter: 2010Q3

REPORT INFORMATION
  Report Type: 
  Country: None (occurrence: None)
  Receive Date: 20100712
  Receipt Date: 20100603
  Transmission Date: 20110219
  Serious: No
  Sender: FDA-Public Use
  Company Number: US-BIOGENIDEC-2010BI018894

PATIENT
  Sex: Female

DRUGS (1)
  1. TYSABRI [Suspect]
     Indication: MULTIPLE SCLEROSIS
     Route: 042
     Dates: start: 20061002

REACTIONS (3)
  - COGNITIVE DISORDER [None]
  - HYPERSOMNIA [None]
  - NUCLEAR MAGNETIC RESONANCE IMAGING ABNORMAL [None]
